FAERS Safety Report 5522733-6 (Version None)
Quarter: 2007Q4

REPORT INFORMATION
  Report Type: 
  Country: None (occurrence: None)
  Receive Date: 20071120
  Receipt Date: 20071030
  Transmission Date: 20080405
  Serious: No
  Sender: FDA-Public Use
  Company Number: US-BOEHRINGER INGELHEIM PHARMACEUTICALS, INC.-2007-BP-23674BP

PATIENT
  Age: 9 Year
  Sex: Male

DRUGS (2)
  1. CATAPRES-TTS-1 [Suspect]
     Route: 061
  2. DAYTRANA [Concomitant]

REACTIONS (2)
  - APPLICATION SITE PAPULES [None]
  - APPLICATION SITE PRURITUS [None]
